FAERS Safety Report 23936214 (Version 2)
Quarter: 2024Q2

REPORT INFORMATION
  Report Type: Report from Study
  Country: JP (occurrence: JP)
  Receive Date: 20240604
  Receipt Date: 20240613
  Transmission Date: 20240716
  Serious: Yes (Hospitalization, Other)
  Sender: FDA-Public Use
  Company Number: JP-GENMAB-2024-01833

PATIENT
  Age: 79 Year
  Sex: Female
  Weight: 50.9 kg

DRUGS (8)
  1. EPKINLY [Suspect]
     Active Substance: EPCORITAMAB-BYSP
     Indication: Diffuse large B-cell lymphoma refractory
     Dosage: 0.16 MILLIGRAM, SINGLE
     Route: 065
     Dates: start: 20231130, end: 20231130
  2. EPKINLY [Suspect]
     Active Substance: EPCORITAMAB-BYSP
     Dosage: 0.8 MILLIGRAM, SINGLE
     Route: 065
     Dates: start: 20231207, end: 20231207
  3. EPKINLY [Suspect]
     Active Substance: EPCORITAMAB-BYSP
     Dosage: 48 MILLIGRAM, WEEKLY
     Route: 065
     Dates: start: 20231214, end: 20231221
  4. CORTICOTROPIN [Concomitant]
     Active Substance: CORTICOTROPIN
     Indication: Prophylaxis
     Dosage: UNK, ON DAY1 OF EPKINLY
     Dates: start: 20231130, end: 20231221
  5. ANTIHISTAMINES NOS [Concomitant]
     Active Substance: ANTIHISTAMINES NOS
     Indication: Prophylaxis
     Dosage: UNK, ON DAY1 OF EPKINLY
     Dates: start: 20231130, end: 20231221
  6. UNSPECIFIED INGREDIENT [Concomitant]
     Active Substance: UNSPECIFIED INGREDIENT
     Indication: Prophylaxis
     Dosage: UNK, ON DAY1 OF EPKINLY
     Dates: start: 20231130, end: 20231221
  7. PREDNISOLONE [Concomitant]
     Active Substance: PREDNISOLONE
     Dosage: 0.5 MILLIGRAM/KILOGRAM, BEFORE THE FIRST, SECOND AND THIRD ADMINISTRATION OF EPKINLY
     Dates: start: 202311, end: 202312
  8. PREDNISOLONE [Concomitant]
     Active Substance: PREDNISOLONE
     Dosage: 100 MILLIGRAM, AFTER THE FIRST, SECOND, THIRD AND FOURTH ADMINISTRATION OF EPKINLY
     Dates: start: 2023, end: 202312

REACTIONS (7)
  - Gaze palsy [Unknown]
  - Pathological fracture [Unknown]
  - Cytokine release syndrome [Recovered/Resolved]
  - Diffuse large B-cell lymphoma refractory [Not Recovered/Not Resolved]
  - Swelling face [Unknown]
  - Swelling face [Unknown]
  - Conjunctival disorder [Unknown]

NARRATIVE: CASE EVENT DATE: 20230101
